FAERS Safety Report 14665512 (Version 2)
Quarter: 2018Q2

REPORT INFORMATION
  Report Type: Report from Study
  Country: DE (occurrence: DE)
  Receive Date: 20180321
  Receipt Date: 20180403
  Transmission Date: 20180711
  Serious: Yes (Hospitalization, Other)
  Sender: FDA-Public Use
  Company Number: DE-INCYTE CORPORATION-2017IN007476

PATIENT

DRUGS (20)
  1. ADENURIC [Concomitant]
     Active Substance: FEBUXOSTAT
     Indication: RENAL FAILURE
     Dosage: 80 MG, QD
     Route: 065
     Dates: start: 20160929
  2. JAKAVI [Suspect]
     Active Substance: RUXOLITINIB
     Indication: ESSENTIAL THROMBOCYTHAEMIA
     Dosage: 20 MG, BID
     Route: 065
     Dates: start: 20170802
  3. DESFERAL [Suspect]
     Active Substance: DEFEROXAMINE MESYLATE
     Dosage: 88MG/KG/BW/DAY=100 ML 0 TO 1INSUFION/WEEK
     Route: 042
     Dates: start: 20180104
  4. TELMISARTAN ZENTIVA [Concomitant]
     Indication: HYPERTENSION
     Dosage: 40 MG, QD
     Route: 065
     Dates: start: 20140828
  5. DESFERAL [Suspect]
     Active Substance: DEFEROXAMINE MESYLATE
     Indication: MYELODYSPLASTIC SYNDROME
     Dosage: 45MG/KG/BW/DAY=100ML 0 TO 1INSUFION/WEEK
     Route: 042
     Dates: start: 20170606, end: 20170612
  6. DESFERAL [Suspect]
     Active Substance: DEFEROXAMINE MESYLATE
     Dosage: 74MG/KG/BW/DAY=100ML 0 TO 1INSUFION/WEEK
     Route: 042
     Dates: start: 20170711, end: 20170807
  7. SIMVASTATIN. [Concomitant]
     Active Substance: SIMVASTATIN
     Indication: PRODUCT USED FOR UNKNOWN INDICATION
     Dosage: 20 MG, QD
     Route: 065
     Dates: start: 20140828
  8. LERCANIDIPINA [Concomitant]
     Active Substance: LERCANIDIPINE
     Indication: ATRIAL FIBRILLATION
     Dosage: 10 MG, QD
     Route: 048
     Dates: start: 20140304
  9. XARELTO [Concomitant]
     Active Substance: RIVAROXABAN
     Indication: ATRIAL FIBRILLATION
     Dosage: 20 MG, QD
     Route: 065
     Dates: start: 20140304
  10. DESFERAL [Suspect]
     Active Substance: DEFEROXAMINE MESYLATE
     Indication: ESSENTIAL THROMBOCYTHAEMIA
     Dosage: 60MG/KG/BW/DAY=100ML 0 TO 1INSUFION/WEEK
     Route: 042
     Dates: start: 20170613, end: 20170710
  11. DESFERAL [Suspect]
     Active Substance: DEFEROXAMINE MESYLATE
     Dosage: 88MG/KG/BW/DAY=100 ML 0 TO 1INSUFION/WEEK
     Route: 042
     Dates: start: 20170808, end: 20171025
  12. DESFERAL [Suspect]
     Active Substance: DEFEROXAMINE MESYLATE
     Dosage: UNK
     Route: 042
     Dates: start: 20171026, end: 20171106
  13. TELMISARTAN. [Concomitant]
     Active Substance: TELMISARTAN
     Indication: HYPERTENSION
     Dosage: 40 MG, QD
     Route: 048
     Dates: start: 20140828
  14. METOPROLOL. [Concomitant]
     Active Substance: METOPROLOL
     Indication: ATRIAL FIBRILLATION
     Dosage: 95 MG, QD
     Route: 048
     Dates: start: 20160824
  15. JAKAVI [Suspect]
     Active Substance: RUXOLITINIB
     Indication: MYELODYSPLASTIC SYNDROME
     Dosage: 30 MG, BID
     Route: 065
     Dates: start: 20160929, end: 20170801
  16. DESFERAL [Suspect]
     Active Substance: DEFEROXAMINE MESYLATE
     Indication: IRON OVERLOAD
     Dosage: 30MG/KG/BW/DAY=50ML 0 TO 1INSUFION/WEEK
     Route: 042
     Dates: start: 20170529, end: 20170605
  17. DESFERAL [Suspect]
     Active Substance: DEFEROXAMINE MESYLATE
     Dosage: UNK
     Route: 042
     Dates: start: 20171220, end: 20180103
  18. MOXONIDIN [Concomitant]
     Active Substance: MOXONIDINE
     Indication: HYPERTENSION
     Dosage: 0.3 MG, QD
     Route: 048
     Dates: start: 20140304
  19. DESFERAL [Suspect]
     Active Substance: DEFEROXAMINE MESYLATE
     Dosage: 88MG/KG/BW/DAY=100 ML 0 TO 1INSUFION/WEEK
     Route: 042
     Dates: start: 20171107, end: 20171219
  20. TORASEMIDE [Concomitant]
     Active Substance: TORSEMIDE
     Indication: CARDIAC FAILURE
     Dosage: 10 MG, QD
     Route: 048
     Dates: start: 20160929

REACTIONS (6)
  - Pneumonia [Recovered/Resolved]
  - Muscle spasms [Not Recovered/Not Resolved]
  - Haemoglobin decreased [Unknown]
  - Chills [Recovered/Resolved]
  - Creatinine renal clearance decreased [Recovered/Resolved]
  - Product use in unapproved indication [Unknown]

NARRATIVE: CASE EVENT DATE: 20170620
